FAERS Safety Report 23886836 (Version 1)
Quarter: 2024Q2

REPORT INFORMATION
  Report Type: Spontaneous
  Country: US (occurrence: US)
  Receive Date: 20240522
  Receipt Date: 20240522
  Transmission Date: 20240716
  Serious: Yes (Hospitalization)
  Sender: FDA-Public Use
  Company Number: US-BRISTOL-MYERS SQUIBB COMPANY-2024-079205

PATIENT
  Age: 83 Year
  Sex: Female

DRUGS (24)
  1. ELIQUIS [Suspect]
     Active Substance: APIXABAN
     Indication: Product used for unknown indication
     Route: 048
  2. VITAMIN D3 [Concomitant]
     Active Substance: CHOLECALCIFEROL
     Indication: Product used for unknown indication
  3. VITAMIN B [Concomitant]
     Active Substance: VITAMIN B
     Indication: Product used for unknown indication
  4. VITAMIN COMPLEX [Concomitant]
     Indication: Product used for unknown indication
  5. TYLENOL [Concomitant]
     Active Substance: ACETAMINOPHEN
     Indication: Product used for unknown indication
  6. ALLERGY RELIEF [DIPHENHYDRAMINE HYDROCHLORIDE] [Concomitant]
     Indication: Product used for unknown indication
  7. BENADRYL [Concomitant]
     Active Substance: DIPHENHYDRAMINE HYDROCHLORIDE
     Indication: Product used for unknown indication
  8. IMODIUM [Concomitant]
     Active Substance: LOPERAMIDE HYDROCHLORIDE
     Indication: Product used for unknown indication
  9. CHEST CONGESTION [GUAIFENESIN] [Concomitant]
     Indication: Product used for unknown indication
  10. MAGNESIUM [Concomitant]
     Active Substance: MAGNESIUM
     Indication: Product used for unknown indication
  11. PROBIOTIC 10 [BIFIDOBACTERIUM BIFIDUM;BIFIDOBACTERIUM LACTIS;LACTIPLAN [Concomitant]
     Indication: Product used for unknown indication
  12. GAS RELIEF [Concomitant]
     Active Substance: DIMETHICONE
     Indication: Product used for unknown indication
  13. ACID CONTROLLER [Concomitant]
     Active Substance: FAMOTIDINE
     Indication: Product used for unknown indication
  14. STOOL SOFTENER (DOCUSATE) [Concomitant]
     Active Substance: DOCUSATE
     Indication: Product used for unknown indication
  15. CALCIUM CARBONATE [Concomitant]
     Active Substance: CALCIUM CARBONATE
     Indication: Product used for unknown indication
  16. ANTIBIOTIC OINTMENT [Concomitant]
     Active Substance: NEOMYCIN SULFATE
     Indication: Product used for unknown indication
  17. SINUS PRESSURE + PAIN PE MAXIMUM STRENGTH [Concomitant]
     Indication: Product used for unknown indication
  18. TOBRAMYCIN [Concomitant]
     Active Substance: TOBRAMYCIN\TOBRAMYCIN SULFATE
     Indication: Product used for unknown indication
     Route: 047
  19. XYLOMETAZOLINE HYDROCHLORIDE [Concomitant]
     Active Substance: XYLOMETAZOLINE HYDROCHLORIDE
     Indication: Product used for unknown indication
  20. NAUZENE (TRISODIUM CITRATE DIHYDRATE) [Concomitant]
     Active Substance: TRISODIUM CITRATE DIHYDRATE
     Indication: Product used for unknown indication
  21. CORTISONE [Concomitant]
     Active Substance: CORTISONE
     Indication: Product used for unknown indication
  22. DICLOFENAC [Concomitant]
     Active Substance: DICLOFENAC
     Indication: Product used for unknown indication
  23. TOOTHACHE RELIEF [Concomitant]
     Indication: Toothache
  24. TOOTHACHE RELIEF [Concomitant]
     Indication: Gingival pain

REACTIONS (4)
  - Fall [Unknown]
  - Contusion [Unknown]
  - Influenza [Unknown]
  - Sinusitis [Unknown]

NARRATIVE: CASE EVENT DATE: 20240405
